FAERS Safety Report 18955528 (Version 3)
Quarter: 2021Q3

REPORT INFORMATION
  Report Type: Spontaneous
  Country: BR (occurrence: BR)
  Receive Date: 20210302
  Receipt Date: 20210819
  Transmission Date: 20211014
  Serious: Yes (Other)
  Sender: FDA-Public Use
  Company Number: BR-JNJFOC-20210241430

PATIENT
  Age: 6 Decade
  Sex: Female
  Weight: 82 kg

DRUGS (1)
  1. REMICADE [Suspect]
     Active Substance: INFLIXIMAB
     Indication: CROHN^S DISEASE
     Dosage: 3 VIALS PER MONTH
     Route: 042

REACTIONS (5)
  - Arthropathy [Unknown]
  - Product use issue [Unknown]
  - Off label use [Unknown]
  - Haemorrhage [Unknown]
  - Drug ineffective [Unknown]
